FAERS Safety Report 9018360 (Version 1)
Quarter: 2013Q1

REPORT INFORMATION
  Report Type: Spontaneous
  Country: US (occurrence: None)
  Receive Date: 20130111
  Receipt Date: 20130111
  Transmission Date: 20140127
  Serious: Yes (Life-Threatening)
  Sender: FDA-Public Use
  Company Number: None

PATIENT
  Age: 80 Year
  Sex: Female

DRUGS (1)
  1. COUMADIN [Suspect]

REACTIONS (5)
  - Haematemesis [None]
  - Rectal haemorrhage [None]
  - Gingival bleeding [None]
  - Haemorrhage [None]
  - Yellow skin [None]
